FAERS Safety Report 23854476 (Version 1)
Quarter: 2024Q2

REPORT INFORMATION
  Report Type: Spontaneous
  Country: US (occurrence: None)
  Receive Date: 20240514
  Receipt Date: 20240514
  Transmission Date: 20240716
  Serious: No
  Sender: FDA-Public Use
  Company Number: None

PATIENT
  Age: 66 Year
  Sex: Female

DRUGS (1)
  1. JAKAFI [Suspect]
     Active Substance: RUXOLITINIB
     Indication: Myelofibrosis
     Dosage: 1 TOT - TOTAL TWICE A DAY ORAL?
     Route: 048
     Dates: start: 20220310

REACTIONS (1)
  - Multiple allergies [None]

NARRATIVE: CASE EVENT DATE: 20240514
